FAERS Safety Report 8734798 (Version 3)
Quarter: 2014Q1

REPORT INFORMATION
  Report Type: Spontaneous
  Country: US (occurrence: US)
  Receive Date: 20120821
  Receipt Date: 20140121
  Transmission Date: 20141002
  Serious: Yes (Other)
  Sender: FDA-Public Use
  Company Number: US-AMGEN-USASP2012052064

PATIENT
  Age: 17 Year
  Sex: Male

DRUGS (3)
  1. EPOGEN [Suspect]
     Indication: RENAL FAILURE CHRONIC
     Dosage: UNK
     Route: 065
  2. ARANESP [Suspect]
     Indication: RENAL FAILURE CHRONIC
     Dosage: 5 MUG/KG, UNK
     Route: 065
  3. ANTIHYPERTENSIVES [Concomitant]
     Dosage: UNK

REACTIONS (9)
  - Aplasia pure red cell [Unknown]
  - Anti-erythropoietin antibody positive [Unknown]
  - Neutralising antibodies positive [Unknown]
  - Therapeutic response decreased [Unknown]
  - Anaemia [Recovered/Resolved]
  - Fatigue [Recovered/Resolved]
  - Pain [Recovered/Resolved]
  - Polycythaemia [Unknown]
  - Nephropathy [Unknown]
